FAERS Safety Report 16007158 (Version 1)
Quarter: 2019Q1

REPORT INFORMATION
  Report Type: Report from Study
  Country: US (occurrence: US)
  Receive Date: 20190226
  Receipt Date: 20190226
  Transmission Date: 20190418
  Serious: Yes (Other)
  Sender: FDA-Public Use
  Company Number: US-BAYER-2019-036294

PATIENT
  Age: 65 Year
  Sex: Female

DRUGS (1)
  1. STIVARGA [Suspect]
     Active Substance: REGORAFENIB
     Indication: INTESTINAL METASTASIS
     Dosage: 160 MG, QD
     Route: 048
     Dates: start: 20190213, end: 20190216

REACTIONS (7)
  - Dizziness [Recovering/Resolving]
  - Pyrexia [Recovered/Resolved]
  - Pain [Recovered/Resolved]
  - Headache [Recovered/Resolved]
  - Tremor [Recovering/Resolving]
  - Bedridden [None]
  - Asthenia [Recovering/Resolving]

NARRATIVE: CASE EVENT DATE: 201902
